FAERS Safety Report 9254920 (Version 1)
Quarter: 2013Q2

REPORT INFORMATION
  Report Type: Spontaneous
  Country: CH (occurrence: CH)
  Receive Date: 20130425
  Receipt Date: 20130425
  Transmission Date: 20140414
  Serious: Yes (Other)
  Sender: FDA-Public Use
  Company Number: CH-BAYER-2013-047799

PATIENT
  Age: 41 Year
  Sex: Male
  Weight: 67 kg

DRUGS (5)
  1. ASPIRIN CARDIO [Suspect]
     Indication: MYOCARDIAL ISCHAEMIA
     Dosage: 100 MG, QD
     Route: 048
     Dates: start: 20130116
  2. CIPROFLOXACIN [Suspect]
     Indication: SUBACUTE ENDOCARDITIS
     Dosage: 1 DF, BID
     Route: 048
     Dates: start: 20130220, end: 20130227
  3. ROCEPHINE [Suspect]
     Indication: ACUTE ENDOCARDITIS
     Dosage: 2 G, QD
     Route: 042
     Dates: start: 20130121, end: 20130220
  4. MARCOUMAR [Interacting]
     Indication: HEART VALVE REPLACEMENT
     Dosage: 1 DF, PRN
     Route: 048
     Dates: start: 2004
  5. PANTOZOL [Suspect]
     Indication: DYSPEPSIA
     Dosage: 40 MG, BID
     Route: 048
     Dates: start: 201302, end: 20130207

REACTIONS (3)
  - Leukopenia [Recovered/Resolved]
  - Neutrophil count decreased [Unknown]
  - Anaemia [Unknown]
